FAERS Safety Report 9648686 (Version 1)
Quarter: 2013Q4

REPORT INFORMATION
  Report Type: Spontaneous
  Country: US (occurrence: None)
  Receive Date: 20131025
  Receipt Date: 20131025
  Transmission Date: 20140711
  Serious: Yes (Hospitalization, Disabling)
  Sender: FDA-Public Use
  Company Number: None

PATIENT
  Age: 53 None
  Sex: Female

DRUGS (2)
  1. OXY CLEANSING MAXIMUM [Suspect]
     Indication: METABOLIC DISORDER
     Dosage: 1-2 SCOOPS BEFORE BREAKFAST 1-2 SCOOPS BEFORE WORK OUT
     Dates: start: 20130730, end: 20130819
  2. AMBIEN (ZOLPIDEM 10 MG) [Concomitant]

REACTIONS (7)
  - Abdominal pain [None]
  - Chromaturia [None]
  - Nausea [None]
  - Faeces discoloured [None]
  - Decreased appetite [None]
  - Weight decreased [None]
  - Malaise [None]
